FAERS Safety Report 19193171 (Version 1)
Quarter: 2021Q2

REPORT INFORMATION
  Report Type: Report from Study
  Country: None (occurrence: US)
  Receive Date: 20210429
  Receipt Date: 20210429
  Transmission Date: 20210717
  Serious: Yes (Hospitalization, Other)
  Sender: FDA-Public Use
  Company Number: US-ABBVIE-21K-163-3804503-00

PATIENT
  Age: 28 Year
  Sex: Female
  Weight: 77.18 kg

DRUGS (4)
  1. HUMIRA [Suspect]
     Active Substance: ADALIMUMAB
     Indication: COLITIS ULCERATIVE
     Dosage: START: EARLY 2020
     Route: 058
     Dates: start: 2020, end: 202012
  2. CELEXA [Concomitant]
     Active Substance: CITALOPRAM HYDROBROMIDE
     Indication: ANXIETY
  3. HUMIRA [Suspect]
     Active Substance: ADALIMUMAB
     Dosage: START: MID JANUARY 2021
     Route: 058
     Dates: start: 202101
  4. COVID?19 VACCINE NOS. [Concomitant]
     Active Substance: COVID-19 VACCINE NOS
     Indication: COVID-19 IMMUNISATION
     Dosage: PFIZER
     Route: 030
     Dates: start: 20210403, end: 20210403

REACTIONS (7)
  - Arthralgia [Recovering/Resolving]
  - Knee arthroplasty [Recovered/Resolved]
  - Knee arthroplasty [Unknown]
  - Gait disturbance [Recovering/Resolving]
  - Osteoarthritis [Recovering/Resolving]
  - Chondropathy [Recovering/Resolving]
  - Procedural pain [Not Recovered/Not Resolved]

NARRATIVE: CASE EVENT DATE: 2020
